FAERS Safety Report 6854075-0 (Version None)
Quarter: 2010Q3

REPORT INFORMATION
  Report Type: 
  Country: None (occurrence: None)
  Receive Date: 20100717
  Receipt Date: 20080206
  Transmission Date: 20110219
  Serious: No
  Sender: FDA-Public Use
  Company Number: US-PFIZER INC-2007105253

PATIENT
  Sex: Female
  Weight: 68.181 kg

DRUGS (1)
  1. CHANTIX [Suspect]
     Indication: SMOKING CESSATION THERAPY
     Dates: start: 20071101

REACTIONS (7)
  - ANXIETY [None]
  - HAEMORRHAGE [None]
  - HEADACHE [None]
  - PRURITUS [None]
  - SCAB [None]
  - SCRATCH [None]
  - SOMNOLENCE [None]
